FAERS Safety Report 5480896-5 (Version None)
Quarter: 2007Q4

REPORT INFORMATION
  Report Type: 
  Country: None (occurrence: None)
  Receive Date: 20071009
  Receipt Date: 20071001
  Transmission Date: 20080405
  Serious: Yes (Other)
  Sender: FDA-Public Use
  Company Number: US-PFIZER INC-2007012135

PATIENT
  Sex: Female
  Weight: 77.1 kg

DRUGS (7)
  1. LIPITOR [Suspect]
     Indication: BLOOD CHOLESTEROL
  2. SYNTHROID [Concomitant]
  3. TOPROL-XL [Concomitant]
  4. AVALIDE [Concomitant]
  5. HYDROCHLOROTHIAZIDE [Concomitant]
  6. ASPIRIN [Concomitant]
  7. VITAMINS [Concomitant]

REACTIONS (4)
  - BLOOD CHOLESTEROL INCREASED [None]
  - BLOOD TRIGLYCERIDES INCREASED [None]
  - LOW DENSITY LIPOPROTEIN INCREASED [None]
  - VERY LOW DENSITY LIPOPROTEIN INCREASED [None]
